FAERS Safety Report 8074595-3 (Version None)
Quarter: 2012Q1

REPORT INFORMATION
  Report Type: 
  Country: None (occurrence: None)
  Receive Date: 20120120
  Receipt Date: 20120111
  Transmission Date: 20120608
  Serious: Yes (Hospitalization, Other)
  Sender: FDA-Public Use
  Company Number: USA/USA/12/0022651

PATIENT
  Age: 97 Year
  Sex: Female

DRUGS (4)
  1. VALSARTAN [Suspect]
     Indication: PRODUCT USED FOR UNKNOWN INDICATION
  2. ASPIRIN [Suspect]
     Indication: PRODUCT USED FOR UNKNOWN INDICATION
  3. METFORMIN HCL [Suspect]
     Indication: PRODUCT USED FOR UNKNOWN INDICATION
  4. AMLODIPINE BESYLATE [Suspect]
     Indication: PRODUCT USED FOR UNKNOWN INDICATION

REACTIONS (14)
  - HYPERKALAEMIA [None]
  - SYNCOPE [None]
  - BLOOD CHLORIDE DECREASED [None]
  - BLOOD CREATININE INCREASED [None]
  - RHYTHM IDIOVENTRICULAR [None]
  - ATRIOVENTRICULAR BLOCK [None]
  - NODAL ARRHYTHMIA [None]
  - BLOOD GLUCOSE INCREASED [None]
  - DIZZINESS [None]
  - CARDIAC MURMUR [None]
  - BLOOD SODIUM DECREASED [None]
  - DEHYDRATION [None]
  - SINUS ARREST [None]
  - QRS AXIS ABNORMAL [None]
